FAERS Safety Report 7254380-2 (Version None)
Quarter: 2011Q1

REPORT INFORMATION
  Report Type: 
  Country: None (occurrence: None)
  Receive Date: 20110129
  Receipt Date: 20100419
  Transmission Date: 20110831
  Serious: No
  Sender: FDA-Public Use
  Company Number: US-ABBOTT-10P-163-0640464-00

PATIENT
  Sex: Female

DRUGS (2)
  1. HUMIRA [Suspect]
     Indication: RHEUMATOID ARTHRITIS
     Route: 058
     Dates: start: 20100101
  2. HUMIRA [Suspect]
     Route: 058
     Dates: start: 20091001, end: 20100101

REACTIONS (4)
  - MALAISE [None]
  - FATIGUE [None]
  - INSOMNIA [None]
  - ARTHRALGIA [None]
